FAERS Safety Report 8505395 (Version 2)
Quarter: 2013Q1

REPORT INFORMATION
  Report Type: Spontaneous
  Country: MX (occurrence: MX)
  Receive Date: 20120412
  Receipt Date: 20130128
  Transmission Date: 20140127
  Serious: Yes (Death)
  Sender: FDA-Public Use
  Company Number: PHHY2012MX030484

PATIENT
  Sex: Male

DRUGS (2)
  1. AFINITOR [Suspect]
     Route: 048
  2. SUNITINIB [Concomitant]

REACTIONS (1)
  - Death [Fatal]
